FAERS Safety Report 13373723 (Version 1)
Quarter: 2017Q1

REPORT INFORMATION
  Report Type: Spontaneous
  Country: US (occurrence: US)
  Receive Date: 20170327
  Receipt Date: 20170327
  Transmission Date: 20170429
  Serious: No
  Sender: FDA-Public Use
  Company Number: US-PFIZER INC-2017127572

PATIENT
  Sex: Female

DRUGS (1)
  1. LYRICA [Suspect]
     Active Substance: PREGABALIN
     Indication: NEUROPATHY PERIPHERAL
     Dosage: 150 MG, 2X/DAY

REACTIONS (6)
  - Withdrawal syndrome [Unknown]
  - Joint swelling [Unknown]
  - Drug ineffective [Unknown]
  - Swelling face [Unknown]
  - Oedema peripheral [Unknown]
  - Gait disturbance [Unknown]
